FAERS Safety Report 15482296 (Version 2)
Quarter: 2019Q3

REPORT INFORMATION
  Report Type: Spontaneous
  Country: FR (occurrence: FR)
  Receive Date: 20181010
  Receipt Date: 20190911
  Transmission Date: 20191004
  Serious: Yes (Other)
  Sender: FDA-Public Use
  Company Number: FR-NOVOPROD-594265

PATIENT
  Sex: Female
  Weight: 77 kg

DRUGS (29)
  1. LAROXYL [Suspect]
     Active Substance: AMITRIPTYLINE HYDROCHLORIDE
     Indication: DIABETIC NEUROPATHY
     Dosage: 2 DF, QD
     Route: 065
     Dates: start: 20160930
  2. DIFFU K [Suspect]
     Active Substance: POTASSIUM CHLORIDE
     Indication: HYPOKALAEMIA
     Dosage: 1200 MG, QD
     Route: 065
     Dates: start: 20170804
  3. FORLAX [Suspect]
     Active Substance: POLYETHYLENE GLYCOL 4000
     Indication: CONSTIPATION
     Dosage: 1 DF, QD
     Route: 065
     Dates: start: 20160930, end: 20170405
  4. ARIPIPRAZOLE. [Suspect]
     Active Substance: ARIPIPRAZOLE
     Indication: BIPOLAR I DISORDER
     Dosage: 10 MG, QD
     Route: 065
     Dates: start: 20160930, end: 20170224
  5. INSULINE (INSULIN PORCINE) [Suspect]
     Active Substance: INSULIN PORK\INSULIN PURIFIED PORK
     Indication: TYPE 2 DIABETES MELLITUS
     Dosage: UNK
     Route: 065
     Dates: start: 20161230, end: 20170224
  6. GABAPENTINE [Suspect]
     Active Substance: GABAPENTIN
     Indication: DIABETIC NEUROPATHY
     Dosage: 400 MG, QD
     Route: 048
     Dates: start: 20160930
  7. GABAPENTINE [Suspect]
     Active Substance: GABAPENTIN
     Dosage: 80 MG, QD
     Route: 048
     Dates: start: 20160930
  8. RAMIPRIL. [Suspect]
     Active Substance: RAMIPRIL
     Indication: HYPERTENSION
     Dosage: 2.5 MG, QD
     Route: 048
     Dates: start: 20160930, end: 20170224
  9. METFORMIN HYDROCHLORIDE. [Suspect]
     Active Substance: METFORMIN HYDROCHLORIDE
     Indication: TYPE 2 DIABETES MELLITUS
     Dosage: 1700 MG, QD
     Route: 048
     Dates: start: 20160930, end: 20170224
  10. LANTUS [Suspect]
     Active Substance: INSULIN GLARGINE
     Indication: TYPE 2 DIABETES MELLITUS
     Dosage: 20 MG, QD
     Route: 048
     Dates: start: 20170224
  11. NICARDIPINE HYDROCHLORIDE. [Suspect]
     Active Substance: NICARDIPINE HYDROCHLORIDE
     Indication: HYPERTENSION
     Dosage: 50 MG, QD
     Route: 065
     Dates: start: 20170405
  12. NICARDIPINE HYDROCHLORIDE. [Suspect]
     Active Substance: NICARDIPINE HYDROCHLORIDE
     Dosage: 100 MG, QD
     Route: 065
     Dates: start: 20180405
  13. LOXEN [NICARDIPINE HYDROCHLORIDE] [Suspect]
     Active Substance: NICARDIPINE HYDROCHLORIDE
     Indication: HYPERTENSION
     Dosage: 50 MG, UNK
     Route: 065
     Dates: start: 20170313, end: 20170405
  14. FOLIC ACID. [Suspect]
     Active Substance: FOLIC ACID
     Indication: NORMOCHROMIC NORMOCYTIC ANAEMIA
     Dosage: 5 MG, QD
     Route: 065
     Dates: start: 20170313
  15. NICOPATCH [Suspect]
     Active Substance: NICOTINE
     Indication: EX-TOBACCO USER
     Dosage: 7 MG, QD
     Route: 065
     Dates: start: 20170224, end: 20170516
  16. METHYLDOPA MSD [Suspect]
     Active Substance: METHYLDOPA
     Indication: HYPERTENSION
     Dosage: 15000 MG, QD
     Route: 048
     Dates: start: 20170720
  17. LARGACTIL [CHLORPROMAZINE HYDROCHLORIDE] [Suspect]
     Active Substance: CHLORPROMAZINE HYDROCHLORIDE
     Indication: BIPOLAR I DISORDER
     Dosage: 25 MG, QD
     Route: 065
     Dates: start: 20170720
  18. GLICLAZIDE [Suspect]
     Active Substance: GLICLAZIDE
     Indication: TYPE 2 DIABETES MELLITUS
     Dosage: 120 MG, QD
     Route: 064
     Dates: start: 20160930, end: 20170224
  19. LASIX [Suspect]
     Active Substance: FUROSEMIDE
     Indication: HYPERTENSION
     Dosage: 40MG
     Route: 065
  20. METFORMIN HYDROCHLORIDE. [Suspect]
     Active Substance: METFORMIN HYDROCHLORIDE
     Dosage: 850 MG, QD
     Route: 048
     Dates: start: 20170224
  21. TRAMADOL HYDROCHLORIDE. [Suspect]
     Active Substance: TRAMADOL HYDROCHLORIDE
     Indication: DIABETIC NEUROPATHY
     Dosage: 50 MG, QD
     Route: 065
     Dates: start: 20160930, end: 20170306
  22. FORLAX [Suspect]
     Active Substance: POLYETHYLENE GLYCOL 4000
     Indication: NORMOCHROMIC NORMOCYTIC ANAEMIA
  23. HUMALOG [Suspect]
     Active Substance: INSULIN LISPRO
     Indication: TYPE 2 DIABETES MELLITUS
     Dosage: 21 ?G/M2, QD
     Route: 065
     Dates: start: 20170224, end: 20170224
  24. FOLINIC ACID                       /00566702/ [Suspect]
     Active Substance: LEUCOVORIN CALCIUM
     Indication: NORMOCHROMIC NORMOCYTIC ANAEMIA
     Dosage: 5 MG, QD
     Route: 065
     Dates: start: 20170224, end: 20170313
  25. LEVEMIR [Suspect]
     Active Substance: INSULIN DETEMIR
     Indication: TYPE 2 DIABETES MELLITUS
     Dosage: 10 IU, QD
     Route: 065
     Dates: start: 20160930, end: 20170224
  26. LASIX [Suspect]
     Active Substance: FUROSEMIDE
     Dosage: 50 MG, UNK
     Route: 065
  27. TARDYFERON [Suspect]
     Active Substance: FERROUS SULFATE
     Indication: NORMOCHROMIC NORMOCYTIC ANAEMIA
     Dosage: 1 DF, QD
     Route: 065
     Dates: start: 20170313
  28. LABETALOL HYDROCHLORIDE. [Suspect]
     Active Substance: LABETALOL HYDROCHLORIDE
     Indication: HYPERTENSION
     Dosage: 80 MG, QD
     Route: 065
     Dates: start: 20170516
  29. AMOXICILLIN. [Suspect]
     Active Substance: AMOXICILLIN
     Indication: PRODUCT USED FOR UNKNOWN INDICATION
     Dosage: 3 G, QD
     Route: 048
     Dates: start: 20170804, end: 20170811

REACTIONS (2)
  - Premature delivery [Recovered/Resolved]
  - Exposure during pregnancy [Recovered/Resolved]

NARRATIVE: CASE EVENT DATE: 20170121
